FAERS Safety Report 15888930 (Version 1)
Quarter: 2019Q1

REPORT INFORMATION
  Report Type: Spontaneous
  Country: US (occurrence: US)
  Receive Date: 20190130
  Receipt Date: 20190130
  Transmission Date: 20190417
  Serious: Yes (Life-Threatening, Hospitalization, Other)
  Sender: FDA-Public Use
  Company Number: US-PURACAP PHARMACEUTICAL LLC-2019EPC00015

PATIENT
  Age: 47 Year
  Sex: Male

DRUGS (2)
  1. AMLODIPINE [Suspect]
     Active Substance: AMLODIPINE BESYLATE
     Dosage: 400 MG
     Route: 065
  2. LISINOPRIL. [Suspect]
     Active Substance: LISINOPRIL
     Route: 065

REACTIONS (11)
  - Leukocytosis [Unknown]
  - Cardiotoxicity [Unknown]
  - Respiratory failure [Recovering/Resolving]
  - Suicide attempt [Recovered/Resolved]
  - Depressed level of consciousness [Unknown]
  - Pulmonary oedema [Unknown]
  - Acute kidney injury [Recovering/Resolving]
  - Lactic acidosis [Unknown]
  - Intentional overdose [Recovered/Resolved]
  - Pneumonia aspiration [Unknown]
  - Hypotension [Recovered/Resolved]
